FAERS Safety Report 23808584 (Version 1)
Quarter: 2024Q2

REPORT INFORMATION
  Report Type: Spontaneous
  Country: IT (occurrence: IT)
  Receive Date: 20240502
  Receipt Date: 20240502
  Transmission Date: 20240715
  Serious: Yes (Hospitalization, Other)
  Sender: FDA-Public Use
  Company Number: None

PATIENT
  Age: 62 Year
  Sex: Female

DRUGS (10)
  1. ENHERTU [Suspect]
     Active Substance: FAM-TRASTUZUMAB DERUXTECAN-NXKI
     Indication: Breast cancer
     Dosage: 348 MG, ONCE EVERY 3 WK (348 MG Q3W)
     Route: 042
  2. DEXAMETHASONE SODIUM PHOSPHATE [Concomitant]
     Active Substance: DEXAMETHASONE PHOSPHATE\DEXAMETHASONE SODIUM PHOSPHATE
     Indication: Product used for unknown indication
     Dosage: 4 MG, BID (4 MG, 1 CAPSULE TWICE A DAY FOR 3 DAYS FROM THE DAY FOLLOWING THERAPY)
     Route: 065
  3. DEXAMETHASONE SODIUM PHOSPHATE [Concomitant]
     Active Substance: DEXAMETHASONE PHOSPHATE\DEXAMETHASONE SODIUM PHOSPHATE
     Dosage: 4 MG, QD (4 MG/DAY FOR FURTHER 7 DAYS)
     Route: 065
  4. LOBIDIUR [Concomitant]
     Active Substance: HYDROCHLOROTHIAZIDE\NEBIVOLOL HYDROCHLORIDE
     Indication: Product used for unknown indication
     Dosage: 1 DF, QD (5 MG + 12.5 MG, 1 CPR/DAY)
     Route: 048
  5. OLANZAPINE [Concomitant]
     Active Substance: OLANZAPINE
     Indication: Product used for unknown indication
     Dosage: 5 MG, QD (5 MG, 1 CPE/DAY FROM THE DAY OF THERAPY FOR 4 DAYS)
     Route: 048
  6. ZOLOFT [Concomitant]
     Active Substance: SERTRALINE HYDROCHLORIDE
     Indication: Product used for unknown indication
     Dosage: 50 MG, QD (50 MG, 1 CPR/DAY)
     Route: 048
  7. EMEND [Concomitant]
     Active Substance: APREPITANT
     Indication: Product used for unknown indication
     Dosage: 1 DF, QD (1 CAPS /DAY FOR 3 DAYS FROM THE DAY OF THERAPY)
     Route: 048
  8. METOCLOPRAMIDE HYDROCHLORIDE [Concomitant]
     Active Substance: METOCLOPRAMIDE HYDROCHLORIDE
     Indication: Product used for unknown indication
     Dosage: 10 MG, ONCE EVERY 8HR (10 MG, 1 CPR EVERY EIGHT HOURS FROM THE 4TH DAY AFTER THERAPY)
     Route: 048
  9. TACHIPIRINA [Concomitant]
     Active Substance: ACETAMINOPHEN
     Indication: Product used for unknown indication
     Dosage: 100 MG, ONCE EVERY 8HR (100 MG, 1 CPR EVERY 8 HOURS)
     Route: 048
  10. NALOXONE HYDROCHLORIDE\OXYCODONE HYDROCHLORIDE [Concomitant]
     Active Substance: NALOXONE HYDROCHLORIDE\OXYCODONE HYDROCHLORIDE
     Indication: Product used for unknown indication
     Dosage: 1 DF, QD (40MG + 20 MG, 1 CPR PER DAY)
     Route: 048

REACTIONS (4)
  - Acute kidney injury [Recovered/Resolved]
  - Gastroenteritis [Recovered/Resolved]
  - Dystonia [Unknown]
  - Vomiting [Recovered/Resolved]

NARRATIVE: CASE EVENT DATE: 20231227
